FAERS Safety Report 8550126-6 (Version None)
Quarter: 2012Q3

REPORT INFORMATION
  Report Type: 
  Country: None (occurrence: None)
  Receive Date: 20120718
  Receipt Date: 20120703
  Transmission Date: 20120928
  Serious: Yes (Hospitalization, Other)
  Sender: FDA-Public Use
  Company Number: TPA2012A02273

PATIENT
  Age: 81 Year
  Sex: Male
  Weight: 71.2147 kg

DRUGS (5)
  1. BYSTOLIC [Concomitant]
  2. VITAMIN D [Concomitant]
  3. EDARBYCLOR [Suspect]
     Indication: HYPERTENSION
     Dosage: 1 IN 1 D, PER ORAL
     Route: 048
     Dates: start: 20120406, end: 20120416
  4. CLONIDINE [Concomitant]
  5. TRAMADOL HCL [Concomitant]

REACTIONS (4)
  - BLOOD ELECTROLYTES ABNORMAL [None]
  - PULMONARY MASS [None]
  - SYNCOPE [None]
  - BLOOD SODIUM DECREASED [None]
